FAERS Safety Report 16115859 (Version 1)
Quarter: 2019Q1

REPORT INFORMATION
  Report Type: Spontaneous
  Country: DE (occurrence: DE)
  Receive Date: 20190326
  Receipt Date: 20190326
  Transmission Date: 20190418
  Serious: Yes (Other)
  Sender: FDA-Public Use
  Company Number: PHHY2019DE054904

PATIENT
  Sex: Male
  Weight: 120 kg

DRUGS (1)
  1. EZETIMIB - 1 A PHARMA [Suspect]
     Active Substance: EZETIMIBE
     Indication: PRODUCT USED FOR UNKNOWN INDICATION
     Dosage: 1 DF, BID
     Route: 065
     Dates: start: 20190301

REACTIONS (5)
  - Myocardial infarction [Unknown]
  - Dyspnoea [Unknown]
  - Infarction [Unknown]
  - Hypoaesthesia [Unknown]
  - Palpitations [Unknown]

NARRATIVE: CASE EVENT DATE: 20190301
